FAERS Safety Report 7111422-2 (Version None)
Quarter: 2010Q4

REPORT INFORMATION
  Report Type: 
  Country: None (occurrence: None)
  Receive Date: 20101118
  Receipt Date: 20100301
  Transmission Date: 20110411
  Serious: No
  Sender: FDA-Public Use
  Company Number: US-PFIZER INC-2010026356

PATIENT
  Sex: Male
  Weight: 68 kg

DRUGS (2)
  1. ZYVOX [Suspect]
     Indication: INFECTION
     Dosage: 600 MG, 2X/DAY
     Route: 048
     Dates: start: 20100214, end: 20100201
  2. PREDNISONE [Concomitant]
     Indication: ADDISON'S DISEASE
     Dosage: 10 MG, UNK
     Route: 048

REACTIONS (1)
  - ABNORMAL FAECES [None]
